FAERS Safety Report 16137540 (Version 1)
Quarter: 2019Q2

REPORT INFORMATION
  Report Type: Report from Study
  Country: None (occurrence: US)
  Receive Date: 20190401
  Receipt Date: 20190401
  Transmission Date: 20190711
  Serious: Yes (Other)
  Sender: FDA-Public Use
  Company Number: US-ABBVIE-19K-163-2723676-00

PATIENT
  Sex: Female

DRUGS (1)
  1. HUMIRA [Suspect]
     Active Substance: ADALIMUMAB
     Indication: RHEUMATOID ARTHRITIS
     Route: 058

REACTIONS (9)
  - Post procedural infection [Unknown]
  - Osteoarthritis [Unknown]
  - Volvulus [Unknown]
  - Muscular weakness [Unknown]
  - Intracranial aneurysm [Unknown]
  - Catheter placement [Unknown]
  - Neoplasm malignant [Recovered/Resolved]
  - Tooth extraction [Unknown]
  - Herpes zoster [Recovering/Resolving]

NARRATIVE: CASE EVENT DATE: 2009
